FAERS Safety Report 11653963 (Version 2)
Quarter: 2015Q4

REPORT INFORMATION
  Report Type: Spontaneous
  Country: US (occurrence: US)
  Receive Date: 20151022
  Receipt Date: 20151209
  Transmission Date: 20160304
  Serious: Yes (Hospitalization, Other)
  Sender: FDA-Public Use
  Company Number: US-AMGEN-USASP2015110093

PATIENT
  Age: 44 Year
  Sex: Female

DRUGS (2)
  1. ENBREL [Suspect]
     Active Substance: ETANERCEPT
     Indication: ARTHRITIS
  2. ENBREL [Suspect]
     Active Substance: ETANERCEPT
     Indication: PSORIASIS
     Dosage: 50 MG, QWK
     Route: 065
     Dates: start: 2014

REACTIONS (5)
  - Needle issue [Unknown]
  - Ketoacidosis [Unknown]
  - Nasopharyngitis [Unknown]
  - Staphylococcal infection [Unknown]
  - Device failure [Unknown]

NARRATIVE: CASE EVENT DATE: 2014
